FAERS Safety Report 8902846 (Version 1)
Quarter: 2012Q4

REPORT INFORMATION
  Report Type: 
  Country: US (occurrence: US)
  Receive Date: 20121112
  Receipt Date: 20121112
  Transmission Date: 20130627
  Serious: Yes (Other)
  Sender: FDA-Public Use
  Company Number: US-AMGEN-USASP2012070778

PATIENT
  Age: 64 Year
  Sex: Male

DRUGS (1)
  1. ENBREL [Suspect]
     Indication: PSORIASIS
     Dosage: 50 mg, qwk
     Dates: start: 20040601, end: 20121019

REACTIONS (3)
  - Bladder cancer stage 0, with cancer in situ [Recovered/Resolved]
  - Bunion [Not Recovered/Not Resolved]
  - Bone deformity [Not Recovered/Not Resolved]
